FAERS Safety Report 12419681 (Version 3)
Quarter: 2020Q2

REPORT INFORMATION
  Report Type: Report from Study
  Country: KR (occurrence: KR)
  Receive Date: 20160531
  Receipt Date: 20200515
  Transmission Date: 20200713
  Serious: Yes (Hospitalization)
  Sender: FDA-Public Use
  Company Number: KR-GLAXOSMITHKLINE-KR2016GSK076277

PATIENT
  Age: 84 Year
  Sex: Female
  Weight: 76.5 kg

DRUGS (11)
  1. ASIMA [Concomitant]
     Active Substance: DOXOFYLLINE
     Indication: ASTHMA
     Dosage: 400 MG, 1D
     Route: 055
     Dates: start: 20110214
  2. STILNOX [Concomitant]
     Active Substance: ZOLPIDEM TARTRATE
     Indication: DEMENTIA
     Dosage: 10 MG, 1D
     Route: 048
     Dates: start: 20151019
  3. RIVOTRIL [Concomitant]
     Active Substance: CLONAZEPAM
     Indication: DEMENTIA
     Dosage: 0.75 MG, 1D
     Route: 048
     Dates: start: 20151109
  4. CLARITIN [Concomitant]
     Active Substance: LORATADINE
     Indication: RHINITIS
     Dosage: 10 MG, 1D
     Route: 048
     Dates: start: 20151222
  5. VENTOLIN [Concomitant]
     Active Substance: ALBUTEROL SULFATE
     Indication: ASTHMA
     Dosage: 2 DF, 1D
     Route: 055
     Dates: start: 20100531
  6. FLUTICASONE FUROATE + VILANTEROL TRIFENATATE [Suspect]
     Active Substance: FLUTICASONE FUROATE\VILANTEROL TRIFENATATE
     Indication: ASTHMA
     Dosage: 25 MG, 1D
     Route: 055
     Dates: start: 20151211
  7. PROVIGIL (NOS) [Concomitant]
     Indication: DEMENTIA
     Dosage: 50 MG, 1D
     Route: 048
     Dates: start: 20151109
  8. SYMBICORT [Concomitant]
     Active Substance: BUDESONIDE\FORMOTEROL FUMARATE DIHYDRATE
     Indication: ASTHMA
     Dosage: 1 DF, BID
     Route: 055
     Dates: start: 20151207, end: 20151210
  9. SPIRIVA [Concomitant]
     Active Substance: TIOTROPIUM BROMIDE MONOHYDRATE
     Indication: ASTHMA
     Dosage: 2 DF, 1D
     Route: 055
     Dates: start: 20151007
  10. SINGULAIR [Concomitant]
     Active Substance: MONTELUKAST SODIUM
     Indication: ASTHMA
     Dosage: 10 MG, 1D
     Route: 048
     Dates: start: 20080118
  11. ARICEPT [Concomitant]
     Active Substance: DONEPEZIL HYDROCHLORIDE
     Indication: DEMENTIA
     Dosage: 5 MG, 1D
     Route: 048
     Dates: start: 20151109

REACTIONS (1)
  - Diabetic neuropathy [Recovered/Resolved]

NARRATIVE: CASE EVENT DATE: 20160106
